FAERS Safety Report 4328156-X (Version None)
Quarter: 2004Q1

REPORT INFORMATION
  Report Type: 
  Country: None (occurrence: None)
  Receive Date: 20040325
  Receipt Date: 20040310
  Transmission Date: 20041129
  Serious: Yes (Hospitalization, Other)
  Sender: FDA-Public Use
  Company Number: 701344

PATIENT
  Age: 64 Year
  Sex: Female
  Weight: 74.8435 kg

DRUGS (6)
  1. AMEVIVE [Suspect]
     Indication: PSORIASIS
     Dosage: 15 MG QW IM
     Route: 030
     Dates: start: 20031030, end: 20031117
  2. AMIODARONE HCL [Concomitant]
  3. NITROGLYCERIN ^DAK^ [Concomitant]
  4. PLAVIX [Concomitant]
  5. TIAZAC [Concomitant]
  6. INSULIN [Concomitant]

REACTIONS (12)
  - ANXIETY [None]
  - ARTERIOSPASM CORONARY [None]
  - BRADYARRHYTHMIA [None]
  - BRADYCARDIA [None]
  - CARDIAC DISORDER [None]
  - CHEST PAIN [None]
  - DEPRESSION [None]
  - DRUG INEFFECTIVE [None]
  - DYSPNOEA [None]
  - HEPATIC STEATOSIS [None]
  - NODAL RHYTHM [None]
  - STRESS SYMPTOMS [None]
